FAERS Safety Report 8830747 (Version 4)
Quarter: 2013Q1

REPORT INFORMATION
  Report Type: Spontaneous
  Country: US (occurrence: US)
  Receive Date: 20121008
  Receipt Date: 20130221
  Transmission Date: 20140127
  Serious: No
  Sender: FDA-Public Use
  Company Number: US-PFIZER INC-2012245110

PATIENT
  Age: 41 Year
  Sex: Male
  Weight: 108.84 kg

DRUGS (8)
  1. EFFEXOR XR [Suspect]
     Indication: ANXIETY
     Dosage: 225 MG, UNK
     Route: 048
  2. EFFEXOR XR [Suspect]
     Indication: PANIC DISORDER
     Dosage: 300 MG, 1X/DAY, (4 X 75 MG) DAILY IN THE MORNING
     Route: 048
     Dates: start: 201209
  3. EFFEXOR XR [Suspect]
     Dosage: UNK
     Route: 048
     Dates: end: 201302
  4. VENLAFAXINE HYDROCHLORIDE [Suspect]
     Dosage: UNK
  5. ASPIRIN [Concomitant]
     Indication: ANTICOAGULANT THERAPY
     Dosage: 81 MG, DAILY
  6. VYTORIN [Concomitant]
     Indication: BLOOD CHOLESTEROL INCREASED
     Dosage: 10/20 MG, 1X/DAY
  7. KLONOPIN [Concomitant]
     Indication: ANXIETY
     Dosage: 1 MG, 4X/DAY
  8. KLONOPIN [Concomitant]
     Indication: PANIC DISORDER

REACTIONS (10)
  - Drug dose omission [Unknown]
  - Activities of daily living impaired [Recovered/Resolved]
  - Disorientation [Unknown]
  - Hepatic enzyme increased [Unknown]
  - Anxiety [Recovered/Resolved]
  - Dizziness [Recovered/Resolved]
  - Hyperhidrosis [Recovered/Resolved]
  - Skin disorder [Recovered/Resolved]
  - Panic attack [Unknown]
  - Drug ineffective [Unknown]
